FAERS Safety Report 6404298-X (Version None)
Quarter: 2009Q4

REPORT INFORMATION
  Report Type: 
  Country: None (occurrence: None)
  Receive Date: 20091016
  Receipt Date: 20091005
  Transmission Date: 20100525
  Serious: Yes (Other)
  Sender: FDA-Public Use
  Company Number: B0595467A

PATIENT
  Sex: Female

DRUGS (3)
  1. IMIGRAN [Suspect]
  2. ZOLMITRIPTAN [Suspect]
     Indication: DRUG USE FOR UNKNOWN INDICATION
     Dosage: 1TAB PER DAY
     Route: 065
     Dates: start: 20080213, end: 20080214
  3. ACETAMINOPHEN W/ CODEINE [Concomitant]
     Route: 048
     Dates: start: 20080213, end: 20080214

REACTIONS (1)
  - PSYCHOTIC DISORDER [None]
